FAERS Safety Report 20220634 (Version 2)
Quarter: 2022Q1

REPORT INFORMATION
  Report Type: Report from Study
  Country: US (occurrence: US)
  Receive Date: 20211223
  Receipt Date: 20220105
  Transmission Date: 20220424
  Serious: Yes (Hospitalization, Other)
  Sender: FDA-Public Use
  Company Number: US-BRISTOL-MYERS SQUIBB COMPANY-BMS-2021-134712

PATIENT
  Age: 57 Year
  Sex: Male
  Weight: 92.1 kg

DRUGS (7)
  1. NIVOLUMAB [Suspect]
     Active Substance: NIVOLUMAB
     Indication: Oesophageal carcinoma
     Dosage: UNK, Q4WK
     Route: 042
     Dates: start: 20210205
  2. RUCAPARIB [Suspect]
     Active Substance: RUCAPARIB
     Indication: Oesophageal carcinoma
     Dosage: 300 MILLIGRAM, BID
     Route: 048
     Dates: start: 20210205
  3. RAMUCIRUMAB [Suspect]
     Active Substance: RAMUCIRUMAB
     Indication: Oesophageal carcinoma
     Dosage: UNK, Q2WK
     Route: 042
     Dates: start: 20210205
  4. ROXICODONE [Concomitant]
     Active Substance: OXYCODONE HYDROCHLORIDE
     Indication: Pain
     Dosage: UNK, PRN (5 TO 10MG, TAKE ONE TABLET TO TWO TABLETS BY MOUTH DAILY AS NEEDED FOR PAIN)
     Route: 048
  5. ZOFRAN [Concomitant]
     Active Substance: ONDANSETRON HYDROCHLORIDE
     Indication: Nausea
     Dosage: 8 MILLIGRAM, QID (DISSOLVE ONE TABLET BY MOUTH EVERY 8 HOURS AS NEEDED FOR NAUSEA OR VOMITING. PLACE
     Route: 048
  6. OMEPRAZOLE [Concomitant]
     Active Substance: OMEPRAZOLE
     Indication: Product used for unknown indication
     Dosage: 40 MILLIGRAM, BID (2MG/ML ORAL SUSPENSION VIA FEEDING TUBE)
     Route: 065
  7. LOTRIMIN [Concomitant]
     Active Substance: CLOTRIMAZOLE
     Indication: Product used for unknown indication
     Dosage: UNK, BID (1 % TOPICAL CREAM, APPLY TO AFFECTED AREA)
     Route: 061

REACTIONS (2)
  - Clostridium difficile colitis [Unknown]
  - SARS-CoV-2 sepsis [Unknown]

NARRATIVE: CASE EVENT DATE: 20211207
